FAERS Safety Report 16817446 (Version 6)
Quarter: 2020Q1

REPORT INFORMATION
  Report Type: Spontaneous
  Country: US (occurrence: US)
  Receive Date: 20190917
  Receipt Date: 20200121
  Transmission Date: 20200409
  Serious: Yes (Hospitalization, Other)
  Sender: FDA-Public Use
  Company Number: US-PFIZER INC-2019399321

PATIENT
  Age: 44 Year
  Sex: Female
  Weight: 98 kg

DRUGS (5)
  1. LYRICA [Suspect]
     Active Substance: PREGABALIN
     Dosage: 150 MG, 1X/DAY (TAKING 1 PILL A DAY INSTEAD OF 2)
     Dates: end: 20190917
  2. LYRICA [Suspect]
     Active Substance: PREGABALIN
     Indication: NERVE INJURY
     Dosage: UNK, 1X/DAY
  3. LYRICA [Suspect]
     Active Substance: PREGABALIN
     Indication: PELVIC PAIN
     Dosage: UNK
     Dates: start: 2016
  4. LYRICA [Suspect]
     Active Substance: PREGABALIN
     Indication: BURNING SENSATION
     Dosage: 150 MG, 2X/DAY (EVERY 12 HOURS)
     Route: 048
  5. LYRICA [Suspect]
     Active Substance: PREGABALIN
     Dosage: 150 MG, 2X/DAY
     Route: 048
     Dates: start: 2016

REACTIONS (12)
  - Pain in extremity [Unknown]
  - Brain neoplasm [Unknown]
  - Musculoskeletal discomfort [Unknown]
  - Gastric disorder [Unknown]
  - Internal haemorrhage [Unknown]
  - Burning sensation [Unknown]
  - Intentional product use issue [Unknown]
  - Injury [Not Recovered/Not Resolved]
  - Patella fracture [Unknown]
  - Product dose omission [Unknown]
  - Haemoglobin decreased [Not Recovered/Not Resolved]
  - Lower limb fracture [Not Recovered/Not Resolved]

NARRATIVE: CASE EVENT DATE: 2014
